FAERS Safety Report 7605959-7 (Version None)
Quarter: 2011Q3

REPORT INFORMATION
  Report Type: 
  Country: None (occurrence: None)
  Receive Date: 20110713
  Receipt Date: 20110629
  Transmission Date: 20111222
  Serious: Yes (Hospitalization)
  Sender: FDA-Public Use
  Company Number: PHHY2011BR29509

PATIENT
  Sex: Female

DRUGS (2)
  1. DIOVAN HCT [Suspect]
     Dosage: 1 DF, UNK
     Route: 048
     Dates: start: 20100701
  2. EXFORGE [Suspect]
     Dosage: 1 DF, UNK
     Route: 048

REACTIONS (3)
  - OSTEOMYELITIS [None]
  - WALKING AID USER [None]
  - OEDEMA PERIPHERAL [None]
